FAERS Safety Report 23970722 (Version 1)
Quarter: 2024Q2

REPORT INFORMATION
  Report Type: Spontaneous
  Country: US (occurrence: US)
  Receive Date: 20240613
  Receipt Date: 20240613
  Transmission Date: 20240716
  Serious: No
  Sender: FDA-Public Use
  Company Number: US-AMGEN-USASP2024114763

PATIENT
  Sex: Male

DRUGS (1)
  1. PROCYSBI [Suspect]
     Active Substance: CYSTEAMINE BITARTRATE
     Indication: Amino acid metabolism disorder
     Dosage: 900 MILLIGRAM, BID (PROCYSBI 75 MG CAP (TAKE 12 CAPSULES (900 MG) BY MOUTH 2 TIMES A DAY))
     Route: 048

REACTIONS (2)
  - Feeling abnormal [Unknown]
  - Off label use [Unknown]
